FAERS Safety Report 19720185 (Version 2)
Quarter: 2022Q2

REPORT INFORMATION
  Report Type: Spontaneous
  Country: DE (occurrence: None)
  Receive Date: 20210818
  Receipt Date: 20220411
  Transmission Date: 20220721
  Serious: Yes (Hospitalization, Other)
  Sender: FDA-Public Use
  Company Number: DE-ADRED-06855-01

PATIENT
  Age: 60 Year
  Sex: Male
  Weight: 58 kg

DRUGS (11)
  1. LEUCOVORIN CALCIUM [Suspect]
     Active Substance: LEUCOVORIN CALCIUM
     Indication: Product used for unknown indication
     Dosage: ACCORDING TO SCHEME, INJECTION/INFUSION SOLUTION?FOLINIC ACID
     Route: 042
  2. OXALIPLATIN [Suspect]
     Active Substance: OXALIPLATIN
     Indication: Product used for unknown indication
     Dosage: ACCORDING TO SCHEME, INJECTION/INFUSION SOLUTION
     Route: 042
  3. IRINOTECAN [Suspect]
     Active Substance: IRINOTECAN
     Indication: Product used for unknown indication
     Dosage: ACCORDING TO SCHEME, INJECTION/INFUSION SOLUTION
     Route: 042
  4. FLUOROURACIL [Suspect]
     Active Substance: FLUOROURACIL
     Indication: Product used for unknown indication
     Dosage: ACCORDING TO SCHEME, INJECTION/INFUSION SOLUTION
     Route: 042
  5. LEVOTHYROXINE SODIUM [Concomitant]
     Active Substance: LEVOTHYROXINE SODIUM
     Indication: Product used for unknown indication
     Dosage: 75 MICROG, 1-0-0-0, TABLETS
     Route: 048
  6. METAMIZOLE [Concomitant]
     Active Substance: METAMIZOLE
     Indication: Product used for unknown indication
     Dosage: 40 GTT, 1-1-1-1, DROPS
     Route: 048
  7. CHOLECALCIFEROL [Concomitant]
     Active Substance: CHOLECALCIFEROL
     Indication: Product used for unknown indication
     Dosage: 1000 IE, 0-0-1-0, CAPSULES?VIGANTOL 1000 I.E. VITAMIN D3 TABLETS
     Route: 048
  8. METFORMIN [Concomitant]
     Active Substance: METFORMIN HYDROCHLORIDE
     Indication: Product used for unknown indication
     Dosage: 500 MG, 1-0-1-0, TABLETS
     Route: 048
  9. FENTANYL [Concomitant]
     Active Substance: FENTANYL
     Indication: Product used for unknown indication
     Dosage: 37.5 MICROG/H, EVERY 3RD DAY CHANGE OF PLASTER
     Route: 062
  10. GLYCOPYRROLATE\INDACATEROL MALEATE [Concomitant]
     Active Substance: GLYCOPYRROLATE\INDACATEROL MALEATE
     Indication: Product used for unknown indication
     Dosage: 1-0-0-0, PULVER CAPSULES?ULTIBRO BREEZHALER 85MICROGRAM/43MICROGRAM
     Route: 055
  11. ATORVASTATIN [Concomitant]
     Active Substance: ATORVASTATIN
     Indication: Product used for unknown indication
     Dosage: 20 MG, 0-0-1-0, TABLETS
     Route: 048

REACTIONS (4)
  - Cachexia [Unknown]
  - General physical health deterioration [Unknown]
  - Gastritis haemorrhagic [Unknown]
  - Weight decreased [Unknown]
